FAERS Safety Report 15643477 (Version 2)
Quarter: 2018Q4

REPORT INFORMATION
  Report Type: Spontaneous
  Country: DE (occurrence: DE)
  Receive Date: 20181121
  Receipt Date: 20181203
  Transmission Date: 20190205
  Serious: Yes (Other)
  Sender: FDA-Public Use
  Company Number: PHHY2018DE159631

PATIENT
  Age: 88 Year
  Sex: Male

DRUGS (3)
  1. IBUHEXAL [Suspect]
     Active Substance: IBUPROFEN
     Indication: BURSITIS
  2. IBUHEXAL [Suspect]
     Active Substance: IBUPROFEN
     Indication: PAIN IN EXTREMITY
  3. IBUHEXAL [Suspect]
     Active Substance: IBUPROFEN
     Indication: EXOSTOSIS
     Dosage: UNK
     Route: 065

REACTIONS (1)
  - Aortic stenosis [Unknown]
